FAERS Safety Report 24602169 (Version 1)
Quarter: 2024Q4

REPORT INFORMATION
  Report Type: Spontaneous
  Country: US (occurrence: US)
  Receive Date: 20241111
  Receipt Date: 20241111
  Transmission Date: 20250114
  Serious: No
  Sender: STRIDES
  Company Number: US-STRIDES ARCOLAB LIMITED-2024SP005626

PATIENT
  Sex: Female
  Weight: 62.132 kg

DRUGS (4)
  1. ACCOLATE [Suspect]
     Active Substance: ZAFIRLUKAST
     Indication: Asthma
     Dosage: 20 MILLIGRAM, EVERY MORNING (TABLET; THERAPY ENDED)
     Route: 048
     Dates: start: 1994, end: 20240510
  2. ACCOLATE [Suspect]
     Active Substance: ZAFIRLUKAST
     Dosage: 20 MILLIGRAM, AT BED TIME (TABLET; THERAPY ENDED)
     Route: 048
     Dates: start: 1994, end: 20240510
  3. TRELEGY ELLIPTA [Concomitant]
     Active Substance: FLUTICASONE FUROATE\UMECLIDINIUM BROMIDE\VILANTEROL TRIFENATATE
     Indication: Asthma
     Dosage: 1 PUFF ONCE A DAY
     Dates: start: 202404
  4. ALBUTEROL [Concomitant]
     Active Substance: ALBUTEROL
     Indication: Product used for unknown indication
     Dosage: UNK, PRN (AS NEEDED)
     Route: 065

REACTIONS (2)
  - Dyspepsia [Not Recovered/Not Resolved]
  - Product dose omission issue [Unknown]
